FAERS Safety Report 8747442 (Version 3)
Quarter: 2013Q1

REPORT INFORMATION
  Report Type: Spontaneous
  Country: FR (occurrence: FR)
  Receive Date: 20120827
  Receipt Date: 20130222
  Transmission Date: 20140127
  Serious: Yes (Other)
  Sender: FDA-Public Use
  Company Number: FR-GLAXOSMITHKLINE-B0822662A

PATIENT
  Sex: Male

DRUGS (6)
  1. NIQUITIN 2MG [Suspect]
     Indication: EX-TOBACCO USER
     Dosage: 40LOZ PER DAY
     Route: 048
     Dates: start: 200908
  2. SPIRIVA [Concomitant]
     Dosage: 1UNIT PER DAY
     Dates: start: 200908
  3. SYMBICORT [Concomitant]
     Dosage: 1BRTH TWICE PER DAY
     Route: 055
     Dates: start: 200908
  4. LEVOTHYROX [Concomitant]
     Indication: THYROIDECTOMY
     Dates: start: 201107
  5. CALCIUM [Concomitant]
     Dosage: 1G PER DAY
     Dates: start: 2011
  6. BEROCCA [Concomitant]
     Dates: start: 2011

REACTIONS (7)
  - Dental caries [Not Recovered/Not Resolved]
  - Tooth erosion [Not Recovered/Not Resolved]
  - Salivary hypersecretion [Not Recovered/Not Resolved]
  - Overdose [Unknown]
  - Drug abuse [Unknown]
  - Off label use [Unknown]
  - Toothache [Not Recovered/Not Resolved]
